FAERS Safety Report 15844840 (Version 2)
Quarter: 2019Q1

REPORT INFORMATION
  Report Type: Spontaneous
  Country: PT (occurrence: PT)
  Receive Date: 20190118
  Receipt Date: 20190205
  Transmission Date: 20190417
  Serious: Yes (Other)
  Sender: FDA-Public Use
  Company Number: PT-MYLANLABS-2019M1004488

PATIENT
  Age: 46 Year
  Sex: Female

DRUGS (3)
  1. METAMIZOL                          /06276701/ [Suspect]
     Active Substance: METAMIZOLE
     Indication: LUMBAR HERNIA
     Dosage: 575 MILLIGRAM, BID
     Dates: start: 201309, end: 201402
  2. PARACETAMOL/TRAMADOL [Suspect]
     Active Substance: ACETAMINOPHEN\TRAMADOL
     Indication: LUMBAR HERNIA
     Dosage: 325 MG + 37.5 MG, TID
     Dates: start: 201309, end: 201402
  3. ACEMETACIN [Suspect]
     Active Substance: ACEMETACIN
     Indication: LUMBAR HERNIA
     Dosage: 60 MILLIGRAM, BID
     Dates: start: 201309, end: 201402

REACTIONS (8)
  - Drug-induced liver injury [None]
  - Hepatitis cholestatic [Recovered/Resolved]
  - Hepatic failure [Recovered/Resolved]
  - Atelectasis [Recovered/Resolved]
  - Hepatic failure [None]
  - Hepatitis acute [Recovered/Resolved]
  - Necrosis [Recovered/Resolved]
  - Pruritus [Recovered/Resolved]

NARRATIVE: CASE EVENT DATE: 201402
